FAERS Safety Report 5453684-3 (Version None)
Quarter: 2007Q3

REPORT INFORMATION
  Report Type: 
  Country: None (occurrence: None)
  Receive Date: 20070917
  Receipt Date: 20070907
  Transmission Date: 20080115
  Serious: Yes (Hospitalization)
  Sender: FDA-Public Use
  Company Number: FR-AVENTIS-200714227EU

PATIENT
  Age: 83 Year
  Sex: Male

DRUGS (11)
  1. FLUDEX                             /00340101/ [Suspect]
     Indication: DRUG USE FOR UNKNOWN INDICATION
     Dosage: DOSE: UNK
     Route: 048
     Dates: start: 20070401, end: 20070727
  2. CORDARONE [Suspect]
     Indication: DRUG USE FOR UNKNOWN INDICATION
     Dosage: DOSE: UNK
     Route: 048
     Dates: end: 20070728
  3. GLIBENESE                          /00390201/ [Concomitant]
  4. KARDEGIC                           /00002703/ [Concomitant]
  5. PLAVIX [Concomitant]
  6. PERMIXON                           /00833501/ [Concomitant]
  7. TRIATEC                            /00885601/ [Concomitant]
  8. ADANCOR [Concomitant]
  9. BUFLOMEDIL [Concomitant]
  10. MOPRAL [Concomitant]
  11. KAYEXALATE [Concomitant]

REACTIONS (5)
  - HYPOKALAEMIA [None]
  - RENAL FAILURE [None]
  - SYNCOPE [None]
  - TORSADE DE POINTES [None]
  - VENTRICULAR TACHYARRHYTHMIA [None]
